FAERS Safety Report 24271481 (Version 1)
Quarter: 2024Q3

REPORT INFORMATION
  Report Type: Spontaneous
  Country: CA (occurrence: CA)
  Receive Date: 20240901
  Receipt Date: 20240901
  Transmission Date: 20241016
  Serious: Yes (Hospitalization)
  Sender: JOHNSON AND JOHNSON
  Company Number: CA-JNJFOC-20240877254

PATIENT
  Age: 48 Year
  Sex: Male
  Weight: 144 kg

DRUGS (11)
  1. INVOKANA [Suspect]
     Active Substance: CANAGLIFLOZIN
     Indication: Type 2 diabetes mellitus
     Route: 048
  2. INVOKANA [Suspect]
     Active Substance: CANAGLIFLOZIN
     Indication: Obesity
  3. INVOKANA [Suspect]
     Active Substance: CANAGLIFLOZIN
     Indication: Arteriosclerosis coronary artery
  4. DILAUDID [Concomitant]
     Active Substance: HYDROMORPHONE HYDROCHLORIDE
  5. INSULIN LISPRO [Concomitant]
     Active Substance: INSULIN LISPRO
     Dosage: 50LIS50NPL
  6. METFORMIN [Concomitant]
     Active Substance: METFORMIN HYDROCHLORIDE
  7. METOPROLOL [Concomitant]
     Active Substance: METOPROLOL
  8. OZEMPIC [Concomitant]
     Active Substance: SEMAGLUTIDE
     Route: 058
  9. PERINDOPRIL [Concomitant]
     Active Substance: PERINDOPRIL
  10. ROSUVASTATIN [Concomitant]
     Active Substance: ROSUVASTATIN\ROSUVASTATIN CALCIUM
  11. TRESIBA [Concomitant]
     Active Substance: INSULIN DEGLUDEC

REACTIONS (2)
  - Fournier^s gangrene [Recovering/Resolving]
  - Sepsis [Recovering/Resolving]
